FAERS Safety Report 9163961 (Version 1)
Quarter: 2013Q1

REPORT INFORMATION
  Report Type: Spontaneous
  Country: US (occurrence: US)
  Receive Date: 20130314
  Receipt Date: 20130314
  Transmission Date: 20140127
  Serious: Yes (Other)
  Sender: FDA-Public Use
  Company Number: US-PFIZER INC-2010092660

PATIENT
  Age: 16 Year
  Sex: Female

DRUGS (6)
  1. FLUOXETINE HCL [Suspect]
     Dosage: 10 MG, 1X/DAY
     Route: 048
  2. FLUOXETINE HCL [Suspect]
     Dosage: 15 MG, 1X/DAY
     Route: 048
  3. ZIPRASIDONE HCL [Suspect]
     Dosage: 60 MG, 2X/DAY
     Route: 048
  4. QUETIAPINE [Suspect]
     Dosage: 100 MG, 1X/DAY
     Route: 048
  5. VALPROATE SEMISODIUM [Concomitant]
  6. DIVALPROEX [Concomitant]
     Dosage: 500 MG, 2X/DAY
     Route: 048

REACTIONS (9)
  - Galactorrhoea [Recovered/Resolved]
  - Breast pain [Unknown]
  - Breast enlargement [Unknown]
  - Tenderness [Unknown]
  - White blood cells urine [Unknown]
  - Nitrite urine present [Unknown]
  - Culture urine positive [Unknown]
  - Drug ineffective [Unknown]
  - Hyperprolactinaemia [Recovered/Resolved]
